FAERS Safety Report 20794477 (Version 2)
Quarter: 2022Q3

REPORT INFORMATION
  Report Type: Report from Study
  Country: US (occurrence: US)
  Receive Date: 20220506
  Receipt Date: 20220715
  Transmission Date: 20221027
  Serious: Yes (Hospitalization, Other)
  Sender: FDA-Public Use
  Company Number: US-AMRYT PHARMACEUTICALS DAC-AEGR004962

PATIENT
  Age: 73 Year
  Sex: Female
  Weight: 86.168 kg

DRUGS (69)
  1. JUXTAPID [Suspect]
     Active Substance: LOMITAPIDE MESYLATE
     Indication: Type IIa hyperlipidaemia
     Dosage: 5 MG, QD
     Route: 048
     Dates: start: 20150331, end: 20150814
  2. ASPIRIN [Concomitant]
     Active Substance: ASPIRIN
     Indication: Peripheral vascular disorder
     Dosage: 81 MG, QD
     Route: 048
     Dates: start: 20090626, end: 20160213
  3. ASPIRIN [Concomitant]
     Active Substance: ASPIRIN
     Indication: Peripheral artery occlusion
     Dosage: 81 MG, QD
     Route: 048
     Dates: start: 20170824
  4. ATORVASTATIN [Concomitant]
     Active Substance: ATORVASTATIN
     Indication: Dyslipidaemia
     Dosage: 80 MG, QHS
     Route: 048
     Dates: start: 20171205, end: 2017
  5. ATORVASTATIN [Concomitant]
     Active Substance: ATORVASTATIN
     Indication: Hyperlipidaemia
     Dosage: 80 MG, QD
     Route: 048
     Dates: start: 20131209
  6. ATORVASTATIN [Concomitant]
     Active Substance: ATORVASTATIN
     Dosage: 80 MILLIGRAM, QD HS
     Route: 048
     Dates: start: 20220216, end: 202202
  7. CHANTIX [Concomitant]
     Active Substance: VARENICLINE TARTRATE
     Indication: Tobacco user
     Dosage: 1 MG, QD
     Route: 048
     Dates: start: 20150323, end: 20150626
  8. CHANTIX [Concomitant]
     Active Substance: VARENICLINE TARTRATE
     Indication: Smoking cessation therapy
     Dosage: 0.5 MG, QD
     Route: 048
     Dates: start: 20180129
  9. CHANTIX [Concomitant]
     Active Substance: VARENICLINE TARTRATE
     Dosage: 0.5 MILLIGRAM, PRN
     Route: 048
     Dates: start: 20200918
  10. CHANTIX [Concomitant]
     Active Substance: VARENICLINE TARTRATE
     Dosage: 1 MILLIGRAM, PRN
     Route: 048
     Dates: start: 20200918
  11. CLOPIDOGREL BISULFATE [Concomitant]
     Active Substance: CLOPIDOGREL BISULFATE
     Indication: Peripheral vascular disorder
     Dosage: 75 MG, QD
     Route: 048
     Dates: start: 20160301, end: 202010
  12. CLOPIDOGREL BISULFATE [Concomitant]
     Active Substance: CLOPIDOGREL BISULFATE
     Dosage: 75 MILLIGRAM, QD
     Route: 048
     Dates: start: 2021, end: 202202
  13. CYMBALTA [Concomitant]
     Active Substance: DULOXETINE HYDROCHLORIDE
     Indication: Peripheral vascular disorder
     Dosage: 30 MG, QD
     Route: 048
     Dates: start: 20150331
  14. CYMBALTA [Concomitant]
     Active Substance: DULOXETINE HYDROCHLORIDE
     Dosage: 60 MG, QD
     Route: 048
     Dates: start: 20150331
  15. DIAZEPAM [Concomitant]
     Active Substance: DIAZEPAM
     Indication: Migraine
     Dosage: 5 MG, QHS
     Route: 048
     Dates: start: 20190624
  16. FERROUS SULFATE [Concomitant]
     Active Substance: FERROUS SULFATE
     Indication: Anaemia
     Dosage: 324 MG (65 MG), BID
     Route: 048
     Dates: start: 20180129
  17. FUROSEMIDE [Concomitant]
     Active Substance: FUROSEMIDE
     Indication: Hypertension
     Dosage: 20 MG, QD
     Route: 048
     Dates: start: 2006
  18. METANX [Concomitant]
     Active Substance: LEVOMEFOLATE CALCIUM\METHYLCOBALAMIN\PYRIDOXAL PHOSPHATE ANHYDROUS
     Indication: Diabetic neuropathy
     Dosage: 1CAPSULE, QD
     Route: 048
     Dates: start: 20171205, end: 2017
  19. METANX [Concomitant]
     Active Substance: LEVOMEFOLATE CALCIUM\METHYLCOBALAMIN\PYRIDOXAL PHOSPHATE ANHYDROUS
     Indication: Supplementation therapy
     Dosage: 3-35-2-90 MG, BID
     Route: 048
     Dates: start: 20190624
  20. METOPROLOL TARTRATE [Concomitant]
     Active Substance: METOPROLOL TARTRATE
     Indication: Hypertension
     Dosage: 100 MG, QD
     Route: 048
     Dates: start: 2006
  21. METOPROLOL TARTRATE [Concomitant]
     Active Substance: METOPROLOL TARTRATE
     Dosage: 100 MILLIGRAM, BID
     Route: 048
     Dates: start: 2006, end: 202202
  22. METOPROLOL TARTRATE [Concomitant]
     Active Substance: METOPROLOL TARTRATE
     Dosage: 25 MILLIGRAM, BID
     Route: 048
     Dates: start: 202202
  23. METOPROLOL TARTRATE [Concomitant]
     Active Substance: METOPROLOL TARTRATE
     Dosage: 25 MILLIGRAM, BID
     Route: 048
     Dates: start: 20220226, end: 202202
  24. METOPROLOL TARTRATE [Concomitant]
     Active Substance: METOPROLOL TARTRATE
     Dosage: 25 MILLIGRAM
     Route: 048
     Dates: start: 202202
  25. MOBIC [Concomitant]
     Active Substance: MELOXICAM
     Indication: Spinal osteoarthritis
     Dosage: 7.5 MG, PRN
     Route: 048
     Dates: start: 20170801
  26. MULTIVITAMIN                       /07504101/ [Concomitant]
     Indication: Supplementation therapy
     Dosage: 1 TABLET, QD
     Route: 048
     Dates: start: 20160611
  27. NEXIUM [Concomitant]
     Active Substance: ESOMEPRAZOLE MAGNESIUM
     Indication: Gastrooesophageal reflux disease
     Dosage: 40 MG, QD
     Route: 048
     Dates: start: 2006
  28. PRAVASTATIN [Concomitant]
     Active Substance: PRAVASTATIN
     Indication: Hypercholesterolaemia
     Dosage: 80 MG, QHS
     Route: 048
     Dates: start: 20160725
  29. OMEPRAZOLE [Concomitant]
     Active Substance: OMEPRAZOLE
     Indication: Gastrooesophageal reflux disease
     Dosage: 40 MG, BID
     Route: 048
     Dates: start: 20180326
  30. OMEPRAZOLE [Concomitant]
     Active Substance: OMEPRAZOLE
     Dosage: 40 MILLIGRAM, QD
     Route: 048
     Dates: start: 20220217, end: 202202
  31. OMEPRAZOLE [Concomitant]
     Active Substance: OMEPRAZOLE
     Dosage: 40 MILLIGRAM, QD
     Route: 048
     Dates: start: 202203
  32. ROSUVASTATIN [Concomitant]
     Active Substance: ROSUVASTATIN
     Indication: Hyperlipidaemia
     Dosage: 20 MG, QHS
     Route: 048
     Dates: start: 20180516, end: 20180709
  33. ROSUVASTATIN [Concomitant]
     Active Substance: ROSUVASTATIN
     Dosage: 20 MG, QHS
     Route: 048
     Dates: start: 20180516
  34. ROSUVASTATIN [Concomitant]
     Active Substance: ROSUVASTATIN
     Dosage: 40 MILLIGRAM, QD
     Route: 048
     Dates: start: 202202
  35. SIMVASTATIN [Concomitant]
     Active Substance: SIMVASTATIN
     Indication: Hyperlipidaemia
     Dosage: 20 MG, QD
     Route: 048
     Dates: start: 20180104
  36. SIMVASTATIN [Concomitant]
     Active Substance: SIMVASTATIN
     Dosage: 40 MG, QD
     Route: 048
     Dates: start: 20180129, end: 20180516
  37. MICARDIS [Concomitant]
     Active Substance: TELMISARTAN
     Indication: Hypertension
     Dosage: 40 MG, QD
     Route: 048
     Dates: start: 20181002
  38. VALSARTAN [Concomitant]
     Active Substance: VALSARTAN
     Indication: Hypertension
     Dosage: 320 MG, QHS
     Route: 048
     Dates: start: 20180516
  39. XANAX [Concomitant]
     Active Substance: ALPRAZOLAM
     Indication: Anxiety
     Dosage: 0.5 MG, QD
     Route: 048
     Dates: start: 20160111
  40. ZONTIVITY [Concomitant]
     Active Substance: VORAPAXAR SULFATE
     Indication: Peripheral arterial occlusive disease
     Dosage: 2.08 MG, QD
     Route: 048
     Dates: start: 20170824
  41. CILOSTAZOL [Concomitant]
     Active Substance: CILOSTAZOL
     Indication: Intermittent claudication
     Dosage: 50 MILLIGRAM, BID
     Route: 048
     Dates: start: 20200916, end: 202010
  42. CILOSTAZOL [Concomitant]
     Active Substance: CILOSTAZOL
     Indication: Peripheral vascular disorder
     Dosage: 50 MILLIGRAM, BID
     Route: 048
     Dates: start: 202202, end: 202202
  43. GABAPENTIN [Concomitant]
     Active Substance: GABAPENTIN
     Indication: Neuralgia
     Dosage: 300 MILLIGRAM, TID
     Route: 048
     Dates: start: 20200608
  44. GABAPENTIN [Concomitant]
     Active Substance: GABAPENTIN
     Indication: Neuropathy peripheral
     Dosage: 300 MILLIGRAM, TID
     Route: 048
     Dates: start: 2021, end: 202112
  45. GABAPENTIN [Concomitant]
     Active Substance: GABAPENTIN
     Dosage: 600 MILLIGRAM, QD
     Route: 048
     Dates: start: 202202, end: 202202
  46. NICOTINE [Concomitant]
     Active Substance: NICOTINE
     Indication: Smoking cessation therapy
     Dosage: 21 MILLIGRAM, QD
     Route: 061
     Dates: start: 20150323, end: 20151207
  47. NICOTINE POLACRILEX [Concomitant]
     Active Substance: NICOTINE
     Indication: Smoking cessation therapy
     Dosage: 2 MILLIGRAM, PRN
     Route: 048
     Dates: start: 20200918
  48. STIOLTO RESPIMAT [Concomitant]
     Active Substance: OLODATEROL HYDROCHLORIDE\TIOTROPIUM BROMIDE MONOHYDRATE
     Indication: Chronic obstructive pulmonary disease
     Dosage: 2.5 MILLIGRAM, QD
     Dates: start: 20201007
  49. VENTOLIN HFA [Concomitant]
     Active Substance: ALBUTEROL SULFATE
     Indication: Chronic obstructive pulmonary disease
     Dosage: 90 MICROGRAM, QD
     Dates: start: 20201007, end: 202203
  50. VENTOLIN HFA [Concomitant]
     Active Substance: ALBUTEROL SULFATE
     Dosage: 2 PUFF, PRN
     Dates: start: 20220216, end: 202202
  51. HYDROCHLOROTHIAZIDE [Concomitant]
     Active Substance: HYDROCHLOROTHIAZIDE
     Indication: Hypertension
     Dosage: 12.5 MILLIGRAM, QD
     Route: 048
     Dates: start: 20210224, end: 202202
  52. AGGRASTAT [Concomitant]
     Active Substance: TIROFIBAN HYDROCHLORIDE
     Indication: Prophylaxis
     Dosage: 46 MILLILITER, SINGLE
     Route: 042
     Dates: start: 20220125, end: 20220125
  53. BENADRYL [Concomitant]
     Active Substance: DIPHENHYDRAMINE HYDROCHLORIDE
     Indication: Prophylaxis
     Dosage: 50 MILLIGRAM, SINGLE
     Route: 048
     Dates: start: 20220125, end: 20220125
  54. BEVESPI AEROSPHERE [Concomitant]
     Active Substance: FORMOTEROL FUMARATE\GLYCOPYRROLATE
     Indication: Chronic obstructive pulmonary disease
     Dosage: 2 PUFF, BID
     Dates: start: 202010
  55. FAMOTIDINE [Concomitant]
     Active Substance: FAMOTIDINE
     Indication: Gastrooesophageal reflux disease
     Dosage: 20 MILLIGRAM, QD HS
     Route: 048
     Dates: start: 2020
  56. FAMOTIDINE [Concomitant]
     Active Substance: FAMOTIDINE
     Indication: Prophylaxis
     Dosage: 20 MILLIGRAM, SINGLE
     Route: 048
     Dates: start: 20220125, end: 20220125
  57. FAMOTIDINE [Concomitant]
     Active Substance: FAMOTIDINE
     Dosage: 20 MILLIGRAM, QD HS
     Dates: start: 2020
  58. FAMOTIDINE [Concomitant]
     Active Substance: FAMOTIDINE
     Dosage: 20 MILLIGRAM, SINGLE
     Route: 048
     Dates: start: 20220125, end: 20220125
  59. TYLENOL [Concomitant]
     Active Substance: ACETAMINOPHEN
     Indication: Prophylaxis
     Dosage: 1000 MILLIGRAM, SINGLE
     Route: 048
     Dates: start: 20220125, end: 20220125
  60. TELMISARTAN [Concomitant]
     Active Substance: TELMISARTAN
     Indication: Hypertension
     Dosage: 80 MILLIGRAM, QD HS
     Dates: start: 20220224, end: 202202
  61. YUPELRI [Concomitant]
     Active Substance: REVEFENACIN
     Indication: Chronic obstructive pulmonary disease
     Dosage: 2 PUFF, BID
     Dates: start: 202010, end: 202203
  62. CARAFATE [Concomitant]
     Active Substance: SUCRALFATE
     Indication: Gastrooesophageal reflux disease
     Dosage: 1 GRAM, QID
     Route: 048
     Dates: start: 20220222, end: 20220224
  63. HYDRALAZINE [Concomitant]
     Active Substance: HYDRALAZINE HYDROCHLORIDE
     Indication: Hypertension
     Dosage: 10 MILLIGRAM, QD
     Route: 048
     Dates: start: 20220217, end: 202202
  64. ALUMINUM HYDROXIDE\MAGNESIUM HYDROXIDE [Concomitant]
     Active Substance: ALUMINUM HYDROXIDE\MAGNESIUM HYDROXIDE
     Indication: Gastrooesophageal reflux disease
     Dosage: 30 MILLILITER, Q4HRS
     Route: 048
     Dates: start: 20220222, end: 202202
  65. METOPROLOL SUCCINATE [Concomitant]
     Active Substance: METOPROLOL SUCCINATE
     Indication: Hypertension
     Dosage: 100 MILLIGRAM, BID
     Route: 048
     Dates: start: 20220216, end: 202202
  66. BACTROBAN [Concomitant]
     Active Substance: MUPIROCIN\MUPIROCIN CALCIUM
     Indication: Prophylaxis
     Dosage: 15 GRAM, BID
     Route: 045
     Dates: start: 20220222, end: 202202
  67. LEVOFLOXACIN [Concomitant]
     Active Substance: LEVOFLOXACIN
     Indication: Prophylaxis
     Dosage: 40 MILLIGRAM, QD
     Route: 058
     Dates: start: 20220225, end: 202202
  68. POTASSIUM CHLORIDE [Concomitant]
     Active Substance: POTASSIUM CHLORIDE
     Indication: Electrolyte substitution therapy
     Dosage: 20 MILLIEQUIVALENT, PRN
     Dates: start: 20220222, end: 20220223
  69. VANCOMYCIN [Concomitant]
     Active Substance: VANCOMYCIN
     Indication: Prophylaxis
     Dosage: 1000 MILLIGRAM, BID
     Route: 042

REACTIONS (26)
  - Coronary artery disease [Recovered/Resolved]
  - Sepsis [Recovered/Resolved]
  - Myocardial infarction [Recovered/Resolved]
  - Pneumothorax [Unknown]
  - Atrial fibrillation [Recovered/Resolved]
  - Peripheral artery restenosis [Recovered/Resolved]
  - Peripheral arterial occlusive disease [Recovered/Resolved with Sequelae]
  - Pulmonary mass [Unknown]
  - Peripheral artery restenosis [Recovered/Resolved]
  - Intermittent claudication [Unknown]
  - Peripheral arterial occlusive disease [Unknown]
  - Wound [Recovered/Resolved]
  - Dysuria [Recovered/Resolved]
  - Pneumonia [Recovered/Resolved]
  - Chronic obstructive pulmonary disease [Recovered/Resolved]
  - Angina pectoris [Recovered/Resolved]
  - Anaemia [Recovered/Resolved]
  - Procedural pain [Unknown]
  - Palpitations [Unknown]
  - Tachycardia [Recovered/Resolved]
  - Hypotension [Recovered/Resolved]
  - Pleural effusion [Recovered/Resolved]
  - Flank pain [Recovered/Resolved]
  - Incision site pain [Unknown]
  - Hypoglycaemia [Recovered/Resolved]
  - Nausea [Recovered/Resolved]

NARRATIVE: CASE EVENT DATE: 20200902
